FAERS Safety Report 7897540-X (Version None)
Quarter: 2011Q4

REPORT INFORMATION
  Report Type: 
  Country: None (occurrence: None)
  Receive Date: 20111103
  Receipt Date: 20111020
  Transmission Date: 20120403
  Serious: Yes (Hospitalization, Other)
  Sender: FDA-Public Use
  Company Number: TPA2011A06951

PATIENT
  Age: 64 Year
  Sex: Female

DRUGS (21)
  1. OXYBUTYNIN (OXYBUTYNIN HYDROCHLORIDE) (TABLETS) [Concomitant]
  2. CYTOMEL (LIOTHYRONINE SODIUM) (TABLETS) [Concomitant]
  3. METHOTREXATE [Concomitant]
  4. JANUMET (METFORMIN HYDROCHLORIDE, SITAGLITIN PHOSPHATE) (TABLETS) [Concomitant]
  5. NEURONTIN [Concomitant]
  6. FOLIC ACID [Concomitant]
  7. SULFASALAZINE (SULFASALAZINE) (TABLETS) [Concomitant]
  8. SYNTHROID [Concomitant]
  9. VITAMIN D [Concomitant]
  10. LORAZEPAM (LORAZEPAM) (TABLETS) [Concomitant]
  11. TOPIRAMATE [Concomitant]
  12. LANTUS [Concomitant]
  13. B COMPLEX B12 (VITAMIN B12-KOMPLEX STANDARD) [Concomitant]
  14. BACLOFEN (BACLOFEN) (TABLETS) [Concomitant]
  15. AVONEX [Concomitant]
  16. ACTOPLUS MET [Suspect]
     Indication: TYPE 2 DIABETES MELLITUS
     Dosage: 15 MG/500 MG, BID ; 15 MG/500 MG,QD
     Dates: start: 20040101, end: 20100608
  17. ACTOPLUS MET [Suspect]
     Indication: TYPE 2 DIABETES MELLITUS
     Dosage: 15 MG/500 MG, BID ; 15 MG/500 MG,QD
     Dates: start: 20100901, end: 20110628
  18. CITALOPRAM HYDROBROMIDE [Concomitant]
  19. MACROBID [Concomitant]
  20. MULTIVITAMIN [Concomitant]
  21. MSM (METHYLSULFONYLMETHANE) [Concomitant]

REACTIONS (4)
  - BLADDER CANCER [None]
  - OEDEMA [None]
  - URINARY TRACT INFECTION [None]
  - SEPSIS [None]
